FAERS Safety Report 5418743-X (Version None)
Quarter: 2007Q3

REPORT INFORMATION
  Report Type: 
  Country: None (occurrence: None)
  Receive Date: 20070817
  Receipt Date: 20070807
  Transmission Date: 20080115
  Serious: Yes (Life-Threatening, Other)
  Sender: FDA-Public Use
  Company Number: GB-PFIZER INC-2007062624

PATIENT
  Age: 49 Year
  Sex: Male
  Weight: 125 kg

DRUGS (7)
  1. CHAMPIX [Suspect]
     Indication: SMOKING CESSATION THERAPY
     Route: 048
  2. TIOTROPIUM [Concomitant]
     Route: 055
  3. DIHYDROCODEINE BITARTRATE INJ [Concomitant]
     Route: 048
  4. PHYLLOCONTIN [Concomitant]
     Route: 048
  5. VENTOLIN [Concomitant]
     Route: 055
  6. FLUTICASONE PROPIONATE [Concomitant]
     Route: 055
  7. PREGABALIN [Concomitant]

REACTIONS (2)
  - ATRIAL FIBRILLATION [None]
  - VENTRICULAR FIBRILLATION [None]
